FAERS Safety Report 10720717 (Version 1)
Quarter: 2015Q1

REPORT INFORMATION
  Report Type: Spontaneous
  Country: US (occurrence: US)
  Receive Date: 20150119
  Receipt Date: 20150119
  Transmission Date: 20150721
  Serious: Yes (Hospitalization)
  Sender: FDA-Public Use
  Company Number: US-UNITED THERAPEUTICS-UNT-2014-005837

PATIENT
  Age: 56 Year
  Sex: Female
  Weight: 128.35 kg

DRUGS (2)
  1. REMODULIN [Suspect]
     Active Substance: TREPROSTINIL
     Indication: PULMONARY ARTERIAL HYPERTENSION
     Dosage: 0.057 ?G/KG, CONTINUING
     Route: 041
     Dates: start: 20070330
  2. REVATIO [Concomitant]
     Active Substance: SILDENAFIL CITRATE
     Indication: PRODUCT USED FOR UNKNOWN INDICATION

REACTIONS (7)
  - Pyrexia [Unknown]
  - Device related infection [Unknown]
  - Feeling cold [Unknown]
  - Cyanosis [Unknown]
  - Tremor [Unknown]
  - Lethargy [Unknown]
  - Chills [Unknown]

NARRATIVE: CASE EVENT DATE: 20140812
